FAERS Safety Report 6960462-2 (Version None)
Quarter: 2010Q3

REPORT INFORMATION
  Report Type: 
  Country: None (occurrence: None)
  Receive Date: 20100901
  Receipt Date: 20100819
  Transmission Date: 20110219
  Serious: Yes (Death)
  Sender: FDA-Public Use
  Company Number: US-RANBAXY-2010US-37296

PATIENT

DRUGS (7)
  1. VERAPAMIL [Suspect]
     Indication: HYPERTENSION
     Dosage: 80 MG 3 IN ONE DAY
     Route: 065
  2. ATORVASTATIN CALCIUM [Suspect]
     Indication: PRODUCT USED FOR UNKNOWN INDICATION
     Dosage: 10 MG 1 IN 1 D
     Route: 065
  3. ATORVASTATIN CALCIUM [Suspect]
     Dosage: 20 MG, 1 IN 1D
  4. LISINOPRIL [Concomitant]
     Indication: PRODUCT USED FOR UNKNOWN INDICATION
     Route: 065
  5. REGULAR INSULIN [Concomitant]
     Indication: PRODUCT USED FOR UNKNOWN INDICATION
     Route: 065
  6. FAMOTIDINE [Concomitant]
     Indication: PRODUCT USED FOR UNKNOWN INDICATION
     Route: 065
  7. ATORVASTATIN CALCIUM [Concomitant]
     Route: 065

REACTIONS (2)
  - DRUG INTERACTION [None]
  - MULTI-ORGAN FAILURE [None]
